FAERS Safety Report 6750101-8 (Version None)
Quarter: 2010Q2

REPORT INFORMATION
  Report Type: 
  Country: None (occurrence: None)
  Receive Date: 20100601
  Receipt Date: 20100519
  Transmission Date: 20101027
  Serious: Yes (Hospitalization, Other)
  Sender: FDA-Public Use
  Company Number: PHHY2010DE33542

PATIENT
  Sex: Female

DRUGS (11)
  1. RASILEZ [Suspect]
     Indication: HYPERTENSION
     Dosage: 1 DF, QD
     Dates: start: 20080101, end: 20100501
  2. DELIX [Suspect]
     Indication: HYPERTENSION
     Dosage: 1 DF, QD
     Dates: start: 20080101, end: 20100501
  3. CARVEDILOL [Concomitant]
     Indication: HYPERTENSION
     Dosage: UNK
  4. MOXONIDINE [Concomitant]
     Indication: HYPERTENSION
     Dosage: 0.4 MG/D
  5. TARGIN [Concomitant]
     Indication: PAIN
     Dosage: 10/20 MG/D
  6. EZETIMIBE/SIMVASTATIN [Concomitant]
     Dosage: 10/20 MG/D
  7. MIRTAZAPINE [Concomitant]
     Dosage: UNK
  8. VALSARTAN [Concomitant]
     Indication: HYPERTENSION
  9. AMLODIPINE [Concomitant]
  10. OPIOIDS [Concomitant]
  11. NSAID'S [Concomitant]

REACTIONS (3)
  - BREAST CANCER [None]
  - RADIOTHERAPY [None]
  - RENAL FAILURE [None]
